FAERS Safety Report 10509872 (Version 1)
Quarter: 2014Q4

REPORT INFORMATION
  Report Type: Spontaneous
  Country: US (occurrence: US)
  Receive Date: 20141010
  Receipt Date: 20141010
  Transmission Date: 20150528
  Serious: Yes (Death)
  Sender: FDA-Public Use
  Company Number: US-BRISTOL-MYERS SQUIBB COMPANY-21478458

PATIENT
  Age: 71 Year
  Sex: Female

DRUGS (7)
  1. LIPITOR [Suspect]
     Active Substance: ATORVASTATIN CALCIUM
  2. LASIX [Suspect]
     Active Substance: FUROSEMIDE
  3. POTASSIUM [Suspect]
     Active Substance: POTASSIUM
  4. INSULIN [Suspect]
     Active Substance: INSULIN NOS
  5. WARFARIN [Suspect]
     Active Substance: WARFARIN
  6. XARELTO [Suspect]
     Active Substance: RIVAROXABAN
  7. COUMADIN [Suspect]
     Active Substance: WARFARIN SODIUM

REACTIONS (1)
  - Myocardial infarction [Fatal]

NARRATIVE: CASE EVENT DATE: 20140422
